FAERS Safety Report 9712795 (Version 1)
Quarter: 2013Q4

REPORT INFORMATION
  Report Type: Spontaneous
  Country: US (occurrence: US)
  Receive Date: 20131126
  Receipt Date: 20131126
  Transmission Date: 20140711
  Serious: No
  Sender: FDA-Public Use
  Company Number: US-BRISTOL-MYERS SQUIBB COMPANY-19236728

PATIENT
  Sex: Female

DRUGS (3)
  1. BYDUREON 2MG SUSPENSION [Suspect]
     Route: 058
     Dates: start: 2013
  2. METFORMIN HCL [Suspect]
  3. PHENTERMINE [Concomitant]

REACTIONS (4)
  - Hypoglycaemia [Unknown]
  - Diarrhoea [Unknown]
  - Decreased appetite [Unknown]
  - Off label use [Unknown]
